FAERS Safety Report 9207939 (Version 3)
Quarter: 2013Q2

REPORT INFORMATION
  Report Type: Spontaneous
  Country: US (occurrence: US)
  Receive Date: 20130403
  Receipt Date: 20130529
  Transmission Date: 20140414
  Serious: Yes (Life-Threatening, Hospitalization, Other)
  Sender: FDA-Public Use
  Company Number: US-ELI_LILLY_AND_COMPANY-US201303009925

PATIENT
  Sex: Female
  Weight: 68 kg

DRUGS (12)
  1. EFFIENT [Suspect]
     Indication: ANGIOPLASTY
     Dosage: 60 MG, UNKNOWN
     Route: 065
  2. EFFIENT [Suspect]
     Dosage: 10 MG, QD
     Route: 048
     Dates: start: 20120725
  3. SIMVASTATIN [Concomitant]
     Dosage: 20 MG, QD
  4. LISINOPRIL [Concomitant]
     Dosage: 5 MG, QD
  5. ATENOLOL [Concomitant]
     Dosage: 50 MG, QD
  6. CELEBREX [Concomitant]
     Dosage: 200 MG, QD
  7. HYDROCHLOROTHIAZIDE [Concomitant]
     Dosage: 50 MG, QD
  8. PROTONIX [Concomitant]
     Dosage: 40 MG, QD
  9. NORCO [Concomitant]
     Indication: BACK PAIN
     Dosage: UNK
  10. ESTROVEN [Concomitant]
  11. ASPIRIN [Concomitant]
     Dosage: 81 MG, QD
  12. ISOSORBIDE MONONITRATE [Concomitant]

REACTIONS (2)
  - Device occlusion [Recovered/Resolved with Sequelae]
  - Arterial occlusive disease [Recovered/Resolved with Sequelae]
